FAERS Safety Report 25907438 (Version 1)
Quarter: 2025Q4

REPORT INFORMATION
  Report Type: Spontaneous
  Country: EU (occurrence: EU)
  Receive Date: 20251010
  Receipt Date: 20251010
  Transmission Date: 20260117
  Serious: Yes (Hospitalization, Disabling)
  Sender: ABBVIE
  Company Number: EU-ABBVIE-6495105

PATIENT
  Age: 41 Year
  Sex: Male

DRUGS (2)
  1. RINVOQ [Suspect]
     Active Substance: UPADACITINIB
     Indication: Product used for unknown indication
     Dates: start: 202312
  2. CLINDAMYCIN [Concomitant]
     Active Substance: CLINDAMYCIN
     Indication: Osteomyelitis
     Dates: start: 202409

REACTIONS (8)
  - Osteomyelitis chronic [Recovered/Resolved with Sequelae]
  - Toe amputation [Recovered/Resolved with Sequelae]
  - Osteomyelitis [Recovered/Resolved with Sequelae]
  - Peripheral sensorimotor neuropathy [Unknown]
  - Purulence [Recovered/Resolved with Sequelae]
  - Abscess limb [Recovered/Resolved with Sequelae]
  - Skin ulcer [Recovered/Resolved with Sequelae]
  - Sensory disturbance [Unknown]

NARRATIVE: CASE EVENT DATE: 20240101
